FAERS Safety Report 18063796 (Version 1)
Quarter: 2020Q3

REPORT INFORMATION
  Report Type: Spontaneous
  Country: GB (occurrence: GB)
  Receive Date: 20200723
  Receipt Date: 20200723
  Transmission Date: 20201103
  Serious: Yes (Death, Life-Threatening, Hospitalization)
  Sender: FDA-Public Use
  Company Number: GB-CELLTRION INC.-2020GB024549

PATIENT

DRUGS (1)
  1. RITUXIMAB (UNKNOWN) [Suspect]
     Active Substance: RITUXIMAB
     Indication: DIFFUSE LARGE B-CELL LYMPHOMA
     Dosage: RECEIVED TREATMENT WITHIN THE LAST 3 MONTHS PRIOR TO SARS?COV?2 INFECTION (10 DAYS FROM LAST THERAPY

REACTIONS (1)
  - COVID-19 [Fatal]
